FAERS Safety Report 20314218 (Version 1)
Quarter: 2022Q1

REPORT INFORMATION
  Report Type: Spontaneous
  Country: US (occurrence: US)
  Receive Date: 20220109
  Receipt Date: 20220109
  Transmission Date: 20220424
  Serious: No
  Sender: FDA-Public Use
  Company Number: US-SA-SAC20220105000537

PATIENT
  Sex: Female

DRUGS (1)
  1. DUPIXENT [Suspect]
     Active Substance: DUPILUMAB
     Indication: Asthma
     Dosage: 300 MG, QOW
     Route: 058
     Dates: start: 20190904

REACTIONS (4)
  - COVID-19 [Recovering/Resolving]
  - Asthma [Recovering/Resolving]
  - Dyspnoea [Recovering/Resolving]
  - Product dose omission issue [Recovering/Resolving]

NARRATIVE: CASE EVENT DATE: 20210101
